FAERS Safety Report 19726236 (Version 1)
Quarter: 2021Q3

REPORT INFORMATION
  Report Type: Spontaneous
  Country: US (occurrence: US)
  Receive Date: 20210819
  Receipt Date: 20210819
  Transmission Date: 20211014
  Serious: Yes (Hospitalization, Other)
  Sender: FDA-Public Use
  Company Number: None

PATIENT
  Age: 48 Year
  Sex: Male
  Weight: 101.6 kg

DRUGS (1)
  1. REGEN?COV [Suspect]
     Active Substance: CASIRIVIMAB\IMDEVIMAB
     Indication: SARS-COV-2 TEST POSITIVE
     Route: 041
     Dates: start: 20210813, end: 20210813

REACTIONS (9)
  - Hyperhidrosis [None]
  - Malaise [None]
  - Retching [None]
  - Heart rate increased [None]
  - Electrocardiogram abnormal [None]
  - Syncope [None]
  - Troponin increased [None]
  - Hypophagia [None]
  - Blood pressure decreased [None]

NARRATIVE: CASE EVENT DATE: 20210813
